FAERS Safety Report 6898951-1 (Version None)
Quarter: 2010Q3

REPORT INFORMATION
  Report Type: 
  Country: None (occurrence: None)
  Receive Date: 20100802
  Receipt Date: 20071220
  Transmission Date: 20110219
  Serious: No
  Sender: FDA-Public Use
  Company Number: US-PFIZER INC-2007108452

PATIENT
  Sex: Female
  Weight: 95.25 kg

DRUGS (7)
  1. LYRICA [Suspect]
     Indication: COMPLEX REGIONAL PAIN SYNDROME
     Dates: start: 20070401
  2. XANAX [Concomitant]
  3. LORTAB [Concomitant]
     Indication: PAIN
  4. SOMA [Concomitant]
     Indication: MUSCLE SPASMS
  5. OXYCODONE [Concomitant]
  6. DILANTIN [Concomitant]
     Indication: CONVULSION
  7. ALBUTEROL [Concomitant]
     Indication: BRONCHITIS

REACTIONS (1)
  - AMPHETAMINES POSITIVE [None]
